FAERS Safety Report 11656892 (Version 2)
Quarter: 2015Q4

REPORT INFORMATION
  Report Type: Spontaneous
  Country: US (occurrence: US)
  Receive Date: 20151023
  Receipt Date: 20151110
  Transmission Date: 20160304
  Serious: No
  Sender: FDA-Public Use
  Company Number: US-SHIRE-US201513031

PATIENT
  Age: 26 Year
  Sex: Female
  Weight: 68.93 kg

DRUGS (7)
  1. VYVANSE [Suspect]
     Active Substance: LISDEXAMFETAMINE DIMESYLATE
     Indication: ATTENTION DEFICIT/HYPERACTIVITY DISORDER
     Dosage: 70 MG, 1X/DAY:QD
     Route: 048
     Dates: start: 2015, end: 2015
  2. XANAX [Concomitant]
     Active Substance: ALPRAZOLAM
     Indication: ANXIETY
     Dosage: 1 MG, AS REQ^D (TID)
     Route: 048
     Dates: start: 20150911
  3. XANAX [Concomitant]
     Active Substance: ALPRAZOLAM
     Indication: PANIC DISORDER
  4. DEPO-PROVERA [Concomitant]
     Active Substance: MEDROXYPROGESTERONE ACETATE
     Indication: CONTRACEPTION
     Dosage: 150 MG, OTHER (Q 90 DAYS)
     Route: 030
     Dates: start: 20150707
  5. VYVANSE [Suspect]
     Active Substance: LISDEXAMFETAMINE DIMESYLATE
     Dosage: 60 MG, 1X/DAY:QD
     Route: 048
     Dates: start: 20150707, end: 20150929
  6. LEXAPRO [Concomitant]
     Active Substance: ESCITALOPRAM OXALATE
     Indication: DEPRESSION
     Dosage: 10 MG, 1X/DAY:QD
     Route: 048
     Dates: start: 20150707
  7. FLEXERIL [Concomitant]
     Active Substance: CYCLOBENZAPRINE HYDROCHLORIDE
     Indication: BACK PAIN
     Dosage: 10 MG, 3X/DAY:TID
     Route: 048
     Dates: start: 2015, end: 2015

REACTIONS (5)
  - Drug dose omission [Not Recovered/Not Resolved]
  - Migraine [Recovered/Resolved]
  - Condition aggravated [Recovered/Resolved]
  - Adverse event [Recovered/Resolved]
  - Attention deficit/hyperactivity disorder [Recovered/Resolved]

NARRATIVE: CASE EVENT DATE: 2015
